FAERS Safety Report 4492269-2 (Version None)
Quarter: 2004Q4

REPORT INFORMATION
  Report Type: 
  Country: None (occurrence: None)
  Receive Date: 20041029
  Receipt Date: 20041027
  Transmission Date: 20050328
  Serious: Yes (Hospitalization)
  Sender: FDA-Public Use
  Company Number: US-2004-028762

PATIENT
  Age: 33 Year
  Sex: Female
  Weight: 59 kg

DRUGS (3)
  1. BETASERON [Suspect]
     Indication: MULTIPLE SCLEROSIS
     Dosage: 8 MIU, EVERY 2D, SUBCUTANEOUS
     Route: 058
     Dates: start: 20021009
  2. DIAZEPAM [Concomitant]
  3. IBUPROFEN [Concomitant]

REACTIONS (6)
  - CONDITION AGGRAVATED [None]
  - FALL [None]
  - HYPOAESTHESIA [None]
  - MULTIPLE SCLEROSIS [None]
  - SENSATION OF HEAVINESS [None]
  - VOMITING [None]
